FAERS Safety Report 20364277 (Version 1)
Quarter: 2022Q1

REPORT INFORMATION
  Report Type: Spontaneous
  Country: US (occurrence: None)
  Receive Date: 20220121
  Receipt Date: 20220121
  Transmission Date: 20220424
  Serious: No
  Sender: FDA-Public Use
  Company Number: None

PATIENT
  Age: 62 Year
  Sex: Female
  Weight: 124.74 kg

DRUGS (1)
  1. CHLORPHENIRAMINE MALEATE [Suspect]
     Active Substance: CHLORPHENIRAMINE MALEATE
     Indication: Multiple allergies
     Dosage: 1 TAB PRN PO?
     Route: 048
     Dates: start: 20210916, end: 20211016

REACTIONS (1)
  - Blister [None]

NARRATIVE: CASE EVENT DATE: 20211021
